FAERS Safety Report 9801654 (Version 2)
Quarter: 2014Q1

REPORT INFORMATION
  Report Type: Report from Study
  Country: GB (occurrence: GB)
  Receive Date: 20140107
  Receipt Date: 20140107
  Transmission Date: 20141002
  Serious: Yes (Hospitalization, Other)
  Sender: FDA-Public Use
  Company Number: GB-BRISTOL-MYERS SQUIBB COMPANY-16101511

PATIENT
  Age: 27 Year
  Sex: Female

DRUGS (15)
  1. IPILIMUMAB [Suspect]
     Indication: MALIGNANT MELANOMA
     Dosage: INTP:26AUG11
     Route: 042
     Dates: start: 20110715, end: 20110826
  2. PIZOTIFEN [Concomitant]
     Dosage: TABS
     Route: 048
     Dates: start: 201012
  3. SUMATRIPTAN [Concomitant]
     Dosage: TABS
     Route: 048
     Dates: start: 201008
  4. PARACETAMOL TABS 500 MG [Concomitant]
     Dosage: QDS
     Route: 048
  5. PREDNISOLONE [Concomitant]
     Dosage: TABS 10 MG
     Route: 048
     Dates: start: 20111021
  6. ZOPICLONE [Concomitant]
     Indication: SLEEP DISORDER
     Dates: start: 20110930, end: 20111018
  7. ONDANSETRON [Concomitant]
     Indication: VOMITING
     Dates: start: 20111020, end: 20111215
  8. CALCEOS [Concomitant]
     Indication: MINERAL SUPPLEMENTATION
     Dosage: 1 DF: 2 UNIT NOS?TABS
     Route: 048
     Dates: start: 20111027, end: 20111110
  9. CYCLIZINE [Concomitant]
     Dates: start: 201110
  10. LANSOPRAZOLE [Concomitant]
     Dosage: CAPS
     Route: 048
     Dates: start: 20111015
  11. ORAMORPH [Concomitant]
     Dates: start: 201110
  12. DEPO-PROVERA [Concomitant]
     Dates: start: 2010
  13. FERROUS SULFATE [Concomitant]
     Dosage: TABS
     Route: 048
  14. HYOSCINE BUTYLBROMIDE [Concomitant]
     Dosage: TABS
     Route: 048
  15. FRESUBIN [Concomitant]
     Dosage: ENERGY DRINK

REACTIONS (4)
  - Colitis [Recovered/Resolved with Sequelae]
  - Intestinal perforation [Unknown]
  - Arthralgia [Recovered/Resolved with Sequelae]
  - Gastrointestinal stoma complication [Recovered/Resolved]
